FAERS Safety Report 8156035-9 (Version None)
Quarter: 2012Q1

REPORT INFORMATION
  Report Type: 
  Country: None (occurrence: None)
  Receive Date: 20120222
  Receipt Date: 20120217
  Transmission Date: 20120608
  Serious: Yes (Death, Hospitalization)
  Sender: FDA-Public Use
  Company Number: NL-GENZYME-CLOF-1002029

PATIENT
  Sex: Male
  Weight: 94 kg

DRUGS (8)
  1. EVOLTRA [Suspect]
     Indication: HAEMATOLOGICAL MALIGNANCY
     Dosage: 23 MG, QD
     Route: 042
     Dates: start: 20101215, end: 20101219
  2. CYCLOSPORINE [Concomitant]
     Indication: PROPHYLAXIS AGAINST GRAFT VERSUS HOST DISEASE
     Dosage: 30 MG, 2DD
     Route: 042
     Dates: start: 20110430, end: 20110505
  3. CYCLOSPORINE [Concomitant]
     Indication: HAEMATOLOGICAL MALIGNANCY
  4. EVOLTRA [Suspect]
     Dosage: 23 MG, QD
     Route: 042
     Dates: start: 20110120, end: 20110124
  5. CYCLOPHOSPHAMIDE [Concomitant]
     Indication: HAEMATOLOGICAL MALIGNANCY
  6. MABCAMPATH [Concomitant]
     Indication: BONE MARROW CONDITIONING REGIMEN
  7. MABCAMPATH [Concomitant]
     Indication: HAEMATOLOGICAL MALIGNANCY
     Dosage: 15 MG, UNK
     Route: 042
     Dates: start: 20110414, end: 20110415
  8. CYCLOPHOSPHAMIDE [Concomitant]
     Indication: BONE MARROW CONDITIONING REGIMEN
     Dosage: 5200 MG, UNK
     Route: 042
     Dates: start: 20110414, end: 20110415

REACTIONS (2)
  - RESPIRATORY FAILURE [None]
  - PNEUMONIA ADENOVIRAL [None]
